FAERS Safety Report 25300359 (Version 1)
Quarter: 2025Q2

REPORT INFORMATION
  Report Type: Spontaneous
  Country: US (occurrence: None)
  Receive Date: 20250510
  Receipt Date: 20250510
  Transmission Date: 20250717
  Serious: No
  Sender: FDA-CTU
  Company Number: None

PATIENT
  Age: 74 Year
  Sex: Female
  Weight: 66.6 kg

DRUGS (9)
  1. TRIAMCINOLONE ACETONIDE [Suspect]
     Active Substance: TRIAMCINOLONE ACETONIDE
     Indication: Dermatitis contact
     Dosage: OTHER STRENGTH : OIN;?OTHER QUANTITY : 2 APPLY TOPICALLY;?FREQUENCY : TWICE A DAY;?
     Route: 061
     Dates: start: 20250429, end: 20250505
  2. ATORVASTATIN [Concomitant]
     Active Substance: ATORVASTATIN
  3. AMLODIPINE [Concomitant]
     Active Substance: AMLODIPINE BESYLATE
  4. EZETIMIBE [Concomitant]
     Active Substance: EZETIMIBE
  5. PROLIA [Concomitant]
     Active Substance: DENOSUMAB
  6. LEVOTHYROXINE [Concomitant]
     Active Substance: LEVOTHYROXINE
  7. CALCIUM CITRATE [Concomitant]
     Active Substance: CALCIUM CITRATE
  8. ASPIRIN [Concomitant]
     Active Substance: ASPIRIN
  9. COENZYME Q10 [Concomitant]
     Active Substance: DIETARY SUPPLEMENT\UBIDECARENONE

REACTIONS (2)
  - Application site erythema [None]
  - Application site swelling [None]

NARRATIVE: CASE EVENT DATE: 20250501
